FAERS Safety Report 21414670 (Version 3)
Quarter: 2024Q2

REPORT INFORMATION
  Report Type: Report from Study
  Country: BR (occurrence: BR)
  Receive Date: 20221006
  Receipt Date: 20240520
  Transmission Date: 20240715
  Serious: Yes (Other)
  Sender: FDA-Public Use
  Company Number: BR-ABBVIE-22K-020-4502569-00

PATIENT
  Sex: Male
  Weight: 83 kg

DRUGS (6)
  1. RINVOQ [Suspect]
     Active Substance: UPADACITINIB
     Indication: Dermatitis atopic
     Dosage: FORM STRENGTH: 15 MILLIGRAM
     Route: 048
     Dates: start: 20220630, end: 202209
  2. RINVOQ [Suspect]
     Active Substance: UPADACITINIB
     Indication: Dermatitis atopic
     Dosage: FORM STRENGTH: 15 MILLIGRAM
     Route: 048
     Dates: start: 202209
  3. RINVOQ [Suspect]
     Active Substance: UPADACITINIB
     Indication: Dermatitis atopic
     Dosage: FORM STRENGTH: 15 MILLIGRAM
     Route: 048
  4. RISEDRONATE SODIUM [Concomitant]
     Active Substance: RISEDRONATE SODIUM
     Indication: Osteopenia
     Dosage: FORM STRENGTH: 35MG
     Route: 048
  5. Alenia [Concomitant]
     Indication: Bronchitis
     Dosage: 12MCG PLUS 400 MCG
     Route: 048
  6. DIOVAN [Concomitant]
     Active Substance: VALSARTAN
     Indication: Hypertension
     Dosage: FORM STRENGTH: 80MG
     Route: 048

REACTIONS (14)
  - Inguinal hernia [Recovered/Resolved]
  - Eye pruritus [Unknown]
  - Oropharyngeal discomfort [Not Recovered/Not Resolved]
  - Dysphagia [Not Recovered/Not Resolved]
  - Immunodeficiency [Recovering/Resolving]
  - Blister [Unknown]
  - Ocular hyperaemia [Unknown]
  - Eye discharge [Unknown]
  - Vision blurred [Unknown]
  - Acne [Recovering/Resolving]
  - Acne [Not Recovered/Not Resolved]
  - Acne [Recovered/Resolved]
  - Herpes virus infection [Recovering/Resolving]
  - Pain of skin [Unknown]

NARRATIVE: CASE EVENT DATE: 20220101
